FAERS Safety Report 13863926 (Version 1)
Quarter: 2017Q3

REPORT INFORMATION
  Report Type: Spontaneous
  Country: US (occurrence: US)
  Receive Date: 20170814
  Receipt Date: 20170814
  Transmission Date: 20171127
  Serious: Yes (Other)
  Sender: FDA-Public Use
  Company Number: US-GALDERMA-US17006121

PATIENT
  Age: 33 Year
  Sex: Male

DRUGS (1)
  1. DOXYCYCLINE. [Suspect]
     Active Substance: DOXYCYCLINE
     Indication: PROPHYLAXIS
     Route: 048

REACTIONS (3)
  - Dysphagia [Recovered/Resolved]
  - Intentional product use issue [Recovered/Resolved]
  - Gastrointestinal mucosal necrosis [Recovered/Resolved]
